FAERS Safety Report 6271266-0 (Version None)
Quarter: 2009Q3

REPORT INFORMATION
  Report Type: 
  Country: None (occurrence: None)
  Receive Date: 20090717
  Receipt Date: 20090709
  Transmission Date: 20100115
  Serious: Yes (Hospitalization, Other)
  Sender: FDA-Public Use
  Company Number: US-JNJFOC-20090702923

PATIENT
  Age: 38 Year
  Sex: Female

DRUGS (4)
  1. ULTRAM [Suspect]
     Indication: DRUG USE FOR UNKNOWN INDICATION
     Dosage: 2 DOSES
     Route: 048
  2. THYROID PREPARATIONS [Concomitant]
     Route: 065
  3. MAXALT [Concomitant]
     Route: 065
  4. PHENCYCLIDINE [Concomitant]

REACTIONS (3)
  - HYPERTENSION [None]
  - POSTICTAL STATE [None]
  - TACHYCARDIA [None]
